FAERS Safety Report 5829026-8 (Version None)
Quarter: 2008Q3

REPORT INFORMATION
  Report Type: 
  Country: None (occurrence: None)
  Receive Date: 20080731
  Receipt Date: 20080728
  Transmission Date: 20090109
  Serious: Yes (Life-Threatening, Hospitalization, Other)
  Sender: FDA-Public Use
  Company Number: PHEH2008US04986

PATIENT
  Sex: Female

DRUGS (2)
  1. EXFORGE [Suspect]
     Dosage: 5/160 MG DAILY
     Route: 048
     Dates: start: 20080220, end: 20080318
  2. HYPNOTICS AND SEDATIVES [Suspect]

REACTIONS (28)
  - AGGRESSION [None]
  - AGITATED DEPRESSION [None]
  - ANGER [None]
  - ANOREXIA [None]
  - BLOOD PRESSURE FLUCTUATION [None]
  - BLOOD PRESSURE INCREASED [None]
  - CARDIAC DISORDER [None]
  - CYSTITIS [None]
  - DEHYDRATION [None]
  - DEPERSONALISATION [None]
  - DIZZINESS [None]
  - DIZZINESS EXERTIONAL [None]
  - DYSURIA [None]
  - FALL [None]
  - FEELING OF DESPAIR [None]
  - HEADACHE [None]
  - HEART RATE DECREASED [None]
  - HEART RATE INCREASED [None]
  - INSOMNIA [None]
  - KIDNEY INFECTION [None]
  - OXYGEN CONSUMPTION DECREASED [None]
  - PALPITATIONS [None]
  - PSYCHOMOTOR HYPERACTIVITY [None]
  - RENAL FAILURE [None]
  - SUICIDAL IDEATION [None]
  - SUICIDE ATTEMPT [None]
  - THIRST DECREASED [None]
  - URINE OUTPUT DECREASED [None]
